FAERS Safety Report 4282121-X (Version None)
Quarter: 2004Q1

REPORT INFORMATION
  Report Type: 
  Country: None (occurrence: None)
  Receive Date: 20040130
  Receipt Date: 20030828
  Transmission Date: 20041129
  Serious: No
  Sender: FDA-Public Use
  Company Number: US-BRISTOL-MYERS SQUIBB COMPANY-12372553

PATIENT
  Sex: Female

DRUGS (6)
  1. TRAZODONE HCL [Suspect]
     Route: 048
  2. EFFEXOR [Suspect]
  3. XANAX [Suspect]
  4. LAMICTAL [Suspect]
  5. NEURONTIN [Suspect]
  6. SYNTHROID [Suspect]

REACTIONS (1)
  - NERVOUSNESS [None]
